FAERS Safety Report 24135827 (Version 1)
Quarter: 2024Q3

REPORT INFORMATION
  Report Type: Spontaneous
  Country: US (occurrence: US)
  Receive Date: 20240725
  Receipt Date: 20240725
  Transmission Date: 20241017
  Serious: Yes (Other)
  Sender: PROCTER AND GAMBLE
  Company Number: US-PROCTER_AND_GAMBLE-GS24079025

PATIENT
  Age: 60 Year
  Sex: Female

DRUGS (1)
  1. CREST PRO HEALTH GUM AND SENSITIVITY ALL DAY PROTECTION [Suspect]
     Active Substance: STANNOUS FLUORIDE
     Dosage: TWICE A DAY
     Route: 002
     Dates: start: 2024

REACTIONS (1)
  - Pulpitis dental [Unknown]

NARRATIVE: CASE EVENT DATE: 20240101
